FAERS Safety Report 5304926-6 (Version None)
Quarter: 2007Q2

REPORT INFORMATION
  Report Type: 
  Country: None (occurrence: None)
  Receive Date: 20070423
  Receipt Date: 20070417
  Transmission Date: 20071010
  Serious: Yes (Other)
  Sender: FDA-Public Use
  Company Number: CH-SHR-CH-2007-006794

PATIENT
  Age: 46 Year
  Sex: Female
  Weight: 62 kg

DRUGS (2)
  1. MIRENA [Suspect]
     Dosage: 20 A?G/DAY, CONT
     Route: 015
     Dates: start: 20060501, end: 20070305
  2. PRED FORTE [Concomitant]
     Dosage: UNK, 1X/DAY
     Route: 047

REACTIONS (2)
  - BLINDNESS UNILATERAL [None]
  - RETINAL VASCULAR THROMBOSIS [None]
